FAERS Safety Report 19766680 (Version 1)
Quarter: 2021Q3

REPORT INFORMATION
  Report Type: Spontaneous
  Country: GB (occurrence: GB)
  Receive Date: 20210830
  Receipt Date: 20210830
  Transmission Date: 20211014
  Serious: Yes (Disabling, Other)
  Sender: FDA-Public Use
  Company Number: None

PATIENT
  Age: 35 Year
  Sex: Female

DRUGS (1)
  1. BETNOVATE [Suspect]
     Active Substance: BETAMETHASONE
     Indication: ECZEMA

REACTIONS (10)
  - Skin weeping [None]
  - Pain [None]
  - Skin exfoliation [None]
  - Mental status changes [None]
  - Erythema [None]
  - Steroid withdrawal syndrome [None]
  - Skin burning sensation [None]
  - Body temperature fluctuation [None]
  - Pruritus [None]
  - Lymphadenopathy [None]

NARRATIVE: CASE EVENT DATE: 20210503
